FAERS Safety Report 20736179 (Version 2)
Quarter: 2022Q2

REPORT INFORMATION
  Report Type: Report from Study
  Country: BR (occurrence: BR)
  Receive Date: 20220421
  Receipt Date: 20220425
  Transmission Date: 20220721
  Serious: Yes (Other)
  Sender: FDA-Public Use
  Company Number: BR-NOVARTISPH-NVSC2022BR091370

PATIENT
  Sex: Female

DRUGS (1)
  1. TEGRETOL XR [Suspect]
     Active Substance: CARBAMAZEPINE
     Indication: Seizure
     Dosage: 200 MG
     Route: 065
     Dates: start: 200905

REACTIONS (8)
  - Brain neoplasm [Recovered/Resolved]
  - Brain oedema [Unknown]
  - Postoperative wound infection [Unknown]
  - Peripheral swelling [Not Recovered/Not Resolved]
  - Memory impairment [Unknown]
  - Paresis [Unknown]
  - Alopecia [Unknown]
  - Speech disorder [Unknown]

NARRATIVE: CASE EVENT DATE: 20090101
